FAERS Safety Report 11411158 (Version 1)
Quarter: 2015Q3

REPORT INFORMATION
  Report Type: Spontaneous
  Country: US (occurrence: US)
  Receive Date: 20150821
  Receipt Date: 20150821
  Transmission Date: 20151125
  Serious: Yes (Other)
  Sender: FDA-Public Use
  Company Number: US-ELI_LILLY_AND_COMPANY-US201004001826

PATIENT
  Age: 56 Year
  Sex: Male

DRUGS (2)
  1. LANTUS [Concomitant]
     Active Substance: INSULIN GLARGINE
     Dosage: 20 U, EACH MORNING
  2. HUMULIN R [Suspect]
     Active Substance: INSULIN HUMAN
     Dosage: 8 U, 2/D

REACTIONS (4)
  - Blood glucose decreased [Unknown]
  - Blood glucose decreased [Unknown]
  - Blood glucose decreased [Unknown]
  - Stress [Unknown]

NARRATIVE: CASE EVENT DATE: 201003
